FAERS Safety Report 12005222 (Version 1)
Quarter: 2016Q1

REPORT INFORMATION
  Report Type: Spontaneous
  Country: US (occurrence: US)
  Receive Date: 20160204
  Receipt Date: 20160204
  Transmission Date: 20160526
  Serious: Yes (Hospitalization, Other)
  Sender: FDA-Public Use
  Company Number: US-ELI_LILLY_AND_COMPANY-US201601010149

PATIENT
  Age: 66 Year
  Sex: Male

DRUGS (3)
  1. CARBOPLATIN. [Concomitant]
     Active Substance: CARBOPLATIN
     Indication: NON-SMALL CELL LUNG CANCER
     Dosage: UNK, CYCLICAL
     Route: 065
     Dates: start: 20150708, end: 20151022
  2. ALIMTA [Suspect]
     Active Substance: PEMETREXED DISODIUM
     Indication: NON-SMALL CELL LUNG CANCER
     Dosage: UNK, UNKNOWN
     Route: 065
     Dates: start: 20150708, end: 20151022
  3. ALIMTA [Suspect]
     Active Substance: PEMETREXED DISODIUM
     Dosage: UNK, CYCLICAL
     Route: 065
     Dates: start: 20151130, end: 20151224

REACTIONS (8)
  - Muscular weakness [Unknown]
  - Atrial flutter [Unknown]
  - Respiratory distress [Unknown]
  - Hypotonia [Unknown]
  - Hypoaesthesia [Unknown]
  - Off label use [Unknown]
  - Hypoaesthesia [Unknown]
  - Hemiplegia [Unknown]

NARRATIVE: CASE EVENT DATE: 20160123
